FAERS Safety Report 5958316-3 (Version None)
Quarter: 2008Q4

REPORT INFORMATION
  Report Type: 
  Country: None (occurrence: None)
  Receive Date: 20081119
  Receipt Date: 20081111
  Transmission Date: 20090506
  Serious: Yes (Other)
  Sender: FDA-Public Use
  Company Number: GB-MERCK-0810GBR00108

PATIENT
  Age: 58 Year
  Sex: Female
  Weight: 60 kg

DRUGS (6)
  1. FOSAMAX [Suspect]
     Indication: OSTEOPOROSIS
     Route: 048
     Dates: end: 20080905
  2. CALCIUM CARBONATE AND CHOLECALCIFEROL [Concomitant]
     Route: 065
  3. COAL TAR AND COCONUT OIL AND SALICYLIC ACID [Concomitant]
     Route: 065
  4. DOTHIEPIN HYDROCHLORIDE [Concomitant]
     Route: 065
  5. EXEMESTANE [Concomitant]
     Route: 065
  6. STRONTIUM RANELATE [Concomitant]
     Route: 065

REACTIONS (3)
  - MOUTH ULCERATION [None]
  - POOR QUALITY SLEEP [None]
  - VAGINAL MUCOSAL BLISTERING [None]
